FAERS Safety Report 7847199-2 (Version None)
Quarter: 2011Q4

REPORT INFORMATION
  Report Type: 
  Country: None (occurrence: None)
  Receive Date: 20111025
  Receipt Date: 20101115
  Transmission Date: 20120403
  Serious: No
  Sender: FDA-Public Use
  Company Number: US-ALLERGAN-1014763US

PATIENT
  Age: 55 Year
  Sex: Female

DRUGS (1)
  1. FML [Suspect]
     Indication: HERPES ZOSTER OPHTHALMIC
     Dosage: UNK
     Route: 047
     Dates: start: 20101030

REACTIONS (1)
  - LACRIMATION INCREASED [None]
